FAERS Safety Report 21258145 (Version 2)
Quarter: 2022Q4

REPORT INFORMATION
  Report Type: Report from Study
  Country: US (occurrence: US)
  Receive Date: 20220826
  Receipt Date: 20221117
  Transmission Date: 20230113
  Serious: No
  Sender: FDA-Public Use
  Company Number: US-NOVARTISTESTPH-NVSC2022US189184

PATIENT
  Age: 60 Year
  Sex: Female

DRUGS (3)
  1. KESIMPTA [Suspect]
     Active Substance: OFATUMUMAB
     Indication: Product used for unknown indication
     Dosage: 20 MG, QMO
     Route: 058
     Dates: start: 202201
  2. PROTONIX [Concomitant]
     Active Substance: PANTOPRAZOLE SODIUM
     Indication: Gastric disorder
     Dosage: UNK
     Route: 065
     Dates: end: 202207
  3. ESOMEPRAZOLE [Concomitant]
     Active Substance: ESOMEPRAZOLE
     Indication: Gastric disorder
     Dosage: UNK
     Route: 065
     Dates: start: 202207

REACTIONS (1)
  - Liver function test increased [Unknown]

NARRATIVE: CASE EVENT DATE: 20220701
